FAERS Safety Report 12896138 (Version 1)
Quarter: 2016Q4

REPORT INFORMATION
  Report Type: Spontaneous
  Country: US (occurrence: US)
  Receive Date: 20161031
  Receipt Date: 20161031
  Transmission Date: 20170207
  Serious: No
  Sender: FDA-Public Use
  Company Number: US-JAZZ-2016-US-016066

PATIENT
  Sex: Female

DRUGS (31)
  1. XYREM [Suspect]
     Active Substance: SODIUM OXYBATE
     Indication: SLEEP DISORDER
     Dosage: 1 G, BID
     Route: 048
     Dates: start: 201104, end: 201105
  2. XYREM [Suspect]
     Active Substance: SODIUM OXYBATE
     Dosage: 4.5 G, BID
     Route: 048
     Dates: start: 201504
  3. TRAZODONE [Concomitant]
     Active Substance: TRAZODONE HYDROCHLORIDE
  4. TYLENOL ARTHRITIS PAIN [Concomitant]
     Active Substance: ACETAMINOPHEN
  5. ARMOUR THYROID [Concomitant]
     Active Substance: THYROID, PORCINE
  6. CELEXA [Concomitant]
     Active Substance: CITALOPRAM HYDROBROMIDE
  7. ADDERALL [Concomitant]
     Active Substance: AMPHETAMINE ASPARTATE\AMPHETAMINE SULFATE\DEXTROAMPHETAMINE SACCHARATE\DEXTROAMPHETAMINE SULFATE
  8. POTASSIUM CITRATE. [Concomitant]
     Active Substance: POTASSIUM CITRATE
  9. MINIVELLE [Concomitant]
     Active Substance: ESTRADIOL
  10. TOPAMAX [Concomitant]
     Active Substance: TOPIRAMATE
  11. PROTONIX [Concomitant]
     Active Substance: PANTOPRAZOLE SODIUM
  12. EFFEXOR [Concomitant]
     Active Substance: VENLAFAXINE HYDROCHLORIDE
  13. VISTARIL [Concomitant]
     Active Substance: HYDROXYZINE PAMOATE
  14. COREG CR [Concomitant]
     Active Substance: CARVEDILOL PHOSPHATE
  15. PRAZOSIN [Concomitant]
     Active Substance: PRAZOSIN
  16. XYREM [Suspect]
     Active Substance: SODIUM OXYBATE
     Dosage: DOSE ADJUSTMENTS
     Route: 048
     Dates: start: 201105, end: 201504
  17. IMITREX [Concomitant]
     Active Substance: SUMATRIPTAN SUCCINATE
  18. NEURONTIN [Concomitant]
     Active Substance: GABAPENTIN
  19. SYNTHROID [Concomitant]
     Active Substance: LEVOTHYROXINE SODIUM
  20. ZANAFLEX [Concomitant]
     Active Substance: TIZANIDINE HYDROCHLORIDE
  21. RESTASIS [Concomitant]
     Active Substance: CYCLOSPORINE
  22. XANAX [Concomitant]
     Active Substance: ALPRAZOLAM
  23. POTASSIUM CITRATE/CITRIC ACID [Concomitant]
  24. PERCOCET [Concomitant]
     Active Substance: ACETAMINOPHEN\OXYCODONE HYDROCHLORIDE
  25. BUSPIRONE HCL [Concomitant]
     Active Substance: BUSPIRONE HYDROCHLORIDE
  26. FIORICET [Concomitant]
     Active Substance: ACETAMINOPHEN\BUTALBITAL\CAFFEINE
  27. ZOFRAN [Concomitant]
     Active Substance: ONDANSETRON HYDROCHLORIDE
  28. BOTOX COSMETIC [Concomitant]
     Active Substance: ONABOTULINUMTOXINA
  29. TENEX [Concomitant]
     Active Substance: GUANFACINE HYDROCHLORIDE
  30. RELPAX [Concomitant]
     Active Substance: ELETRIPTAN HYDROBROMIDE
  31. VALIUM [Concomitant]
     Active Substance: DIAZEPAM

REACTIONS (1)
  - Dry eye [Unknown]
